FAERS Safety Report 5150077-3 (Version None)
Quarter: 2006Q4

REPORT INFORMATION
  Report Type: 
  Country: None (occurrence: None)
  Receive Date: 20061113
  Receipt Date: 20060721
  Transmission Date: 20070319
  Serious: Yes (Death, Hospitalization, Other)
  Sender: FDA-Public Use
  Company Number: AT-ABBOTT-06P-009-0345426-00

PATIENT
  Age: 76 Year
  Sex: Male
  Weight: 75 kg

DRUGS (11)
  1. ZEMPLAR [Suspect]
     Indication: HYPERPARATHYROIDISM SECONDARY
     Route: 042
     Dates: start: 20060605, end: 20060703
  2. ZEMPLAR [Suspect]
     Dosage: UG
     Route: 042
     Dates: start: 20060703, end: 20060720
  3. ANTIPHOS [Concomitant]
     Indication: HYPERPARATHYROIDISM SECONDARY
     Route: 048
     Dates: start: 20060508, end: 20060710
  4. NICORANDIL [Concomitant]
     Indication: CORONARY ARTERY DISEASE
     Route: 048
     Dates: start: 20050501
  5. FUROSEMIDE [Concomitant]
     Indication: RENAL FAILURE CHRONIC
     Route: 048
     Dates: start: 20050501
  6. ALNA RET [Concomitant]
     Indication: BENIGN PROSTATIC HYPERPLASIA
     Route: 048
     Dates: start: 20050501
  7. LEVOTHYROXINE SODIUM [Concomitant]
     Indication: HYPOTHYROIDISM
     Route: 048
     Dates: start: 20050701
  8. MONOKET-RET [Concomitant]
     Indication: CORONARY ARTERY DISEASE
     Dates: start: 20050701
  9. CITALOPRAM HYDROBROMIDE [Concomitant]
     Indication: DEPRESSION
     Dates: start: 20060501
  10. FLUNITRAZEPAM [Concomitant]
     Indication: DEPRESSION
     Dates: start: 20060501
  11. PHENPROCOUMON [Concomitant]
     Indication: VARICOSE VEIN
     Route: 048
     Dates: start: 19900101

REACTIONS (7)
  - ANGINA PECTORIS [None]
  - ATRIAL FIBRILLATION [None]
  - DEMENTIA [None]
  - DEPRESSION [None]
  - GENERAL PHYSICAL HEALTH DETERIORATION [None]
  - PULMONARY EMBOLISM [None]
  - TACHYCARDIA [None]
